FAERS Safety Report 16810362 (Version 1)
Quarter: 2019Q3

REPORT INFORMATION
  Report Type: Spontaneous
  Country: CH (occurrence: CH)
  Receive Date: 20190916
  Receipt Date: 20190916
  Transmission Date: 20191005
  Serious: Yes (Other)
  Sender: FDA-Public Use
  Company Number: CH-TEVA-2019-CH-1108415

PATIENT
  Age: 76 Year
  Sex: Male

DRUGS (13)
  1. TORASEMID MEPHA [Suspect]
     Active Substance: TORSEMIDE
     Route: 048
     Dates: start: 20180705
  2. DUOTRAV [Suspect]
     Active Substance: TIMOLOL MALEATE\TRAVOPROST
     Route: 048
     Dates: start: 20180323
  3. TOREM [Suspect]
     Active Substance: TORSEMIDE
     Route: 048
     Dates: start: 20180321
  4. BELOC ZOK [Suspect]
     Active Substance: METOPROLOL SUCCINATE
     Route: 048
     Dates: start: 20180525
  5. RISPERDAL [Suspect]
     Active Substance: RISPERIDONE
     Route: 048
     Dates: start: 20180611, end: 20190819
  6. LISITRIL [Suspect]
     Active Substance: LISINOPRIL
     Route: 048
     Dates: start: 20180323
  7. NOVORAPID [Suspect]
     Active Substance: INSULIN ASPART
     Dosage: AS NECESSARY
     Dates: start: 20180327
  8. DAFALGAN [Suspect]
     Active Substance: ACETAMINOPHEN
     Dosage: MAX 4X/DAY ; AS NECESSARY
     Dates: start: 20180321, end: 20190827
  9. TRITTICO [Suspect]
     Active Substance: TRAZODONE HYDROCHLORIDE
     Route: 048
     Dates: start: 20180410
  10. ESOMEPRAZOLE SANDOZ [Suspect]
     Active Substance: ESOMEPRAZOLE
     Route: 048
     Dates: start: 20180510
  11. ASPIRIN CARDIO [Suspect]
     Active Substance: ASPIRIN
     Route: 048
     Dates: start: 20180823
  12. ISOPHANE INSULIN [Suspect]
     Active Substance: INSULIN NOS
     Route: 048
     Dates: start: 20190324
  13. TRAJENTA [Suspect]
     Active Substance: LINAGLIPTIN
     Route: 048
     Dates: start: 20180410

REACTIONS (1)
  - Pemphigoid [Not Recovered/Not Resolved]

NARRATIVE: CASE EVENT DATE: 20190819
